FAERS Safety Report 21167059 (Version 2)
Quarter: 2022Q3

REPORT INFORMATION
  Report Type: Spontaneous
  Country: US (occurrence: US)
  Receive Date: 20220803
  Receipt Date: 20220901
  Transmission Date: 20221027
  Serious: Yes (Death, Other)
  Sender: FDA-Public Use
  Company Number: US-PFIZER INC-202200463834

PATIENT
  Age: 42 Year
  Sex: Male

DRUGS (2)
  1. TRAZIMERA [Suspect]
     Active Substance: TRASTUZUMAB-QYYP
     Dosage: 380 MG, CYCLIC (INJECT 380MG EVERY 2 WKS)
  2. TRAZIMERA [Suspect]
     Active Substance: TRASTUZUMAB-QYYP
     Dosage: 420 MG

REACTIONS (2)
  - Death [Fatal]
  - Off label use [Unknown]
